FAERS Safety Report 7011556-7 (Version None)
Quarter: 2010Q3

REPORT INFORMATION
  Report Type: 
  Country: None (occurrence: None)
  Receive Date: 20100923
  Receipt Date: 20090310
  Transmission Date: 20110219
  Serious: No
  Sender: FDA-Public Use
  Company Number: US-WYE-H08546009

PATIENT
  Age: 45 Year
  Sex: Female
  Weight: 61.29 kg

DRUGS (1)
  1. ADVIL COLD AND SINUS [Suspect]
     Indication: NASOPHARYNGITIS
     Dosage: 2 CAPLETS EVERY 6 HOURS
     Route: 048
     Dates: start: 20090201, end: 20090201

REACTIONS (2)
  - HEADACHE [None]
  - INFLUENZA [None]
